APPROVED DRUG PRODUCT: THIOLA
Active Ingredient: TIOPRONIN
Strength: 100MG
Dosage Form/Route: TABLET;ORAL
Application: N019569 | Product #001 | TE Code: AB
Applicant: MISSION PHARMACAL CO
Approved: Aug 11, 1988 | RLD: Yes | RS: Yes | Type: RX

EXCLUSIVITY:
Code: ODE-267 | Date: Jun 28, 2026